FAERS Safety Report 8789589 (Version 1)
Quarter: 2012Q4

REPORT INFORMATION
  Report Type: Spontaneous
  Country: US (occurrence: None)
  Receive Date: 20120910
  Receipt Date: 20120910
  Transmission Date: 20130627
  Serious: Yes (Life-Threatening, Other)
  Sender: FDA-Public Use
  Company Number: None

PATIENT
  Age: 62 Year
  Sex: Female
  Weight: 74.84 kg

DRUGS (4)
  1. BUPROPRION XL [Suspect]
     Dosage: every morning
     Route: 048
     Dates: start: 20100101, end: 20120831
  2. BUPROPRION XL [Suspect]
     Dosage: every morning
     Route: 048
     Dates: start: 20100101, end: 20120831
  3. BUPROPRION XL [Suspect]
     Dosage: every noon
  4. BUPROPRION XL [Suspect]
     Dosage: every noon

REACTIONS (9)
  - Muscle twitching [None]
  - Migraine [None]
  - Dyskinesia [None]
  - Confusional state [None]
  - Disturbance in attention [None]
  - Coordination abnormal [None]
  - Chest pain [None]
  - Cardiac flutter [None]
  - Palpitations [None]
